FAERS Safety Report 8756616 (Version 1)
Quarter: 2012Q4

REPORT INFORMATION
  Report Type: 
  Country: US (occurrence: US)
  Receive Date: 20120828
  Receipt Date: 20120828
  Transmission Date: 20130627
  Serious: No
  Sender: FDA-Public Use
  Company Number: US-PFIZER INC-K201101195

PATIENT

DRUGS (1)
  1. SONATA [Suspect]
     Dosage: UNK
     Route: 048
     Dates: start: 20110830

REACTIONS (1)
  - Drug ineffective [Unknown]
